FAERS Safety Report 21184574 (Version 1)
Quarter: 2022Q3

REPORT INFORMATION
  Report Type: Spontaneous
  Country: US (occurrence: None)
  Receive Date: 20220805
  Receipt Date: 20220805
  Transmission Date: 20221027
  Serious: Yes (Other)
  Sender: FDA-Public Use
  Company Number: None

PATIENT
  Age: 39 Year
  Sex: Female

DRUGS (2)
  1. BOSENTAN [Suspect]
     Active Substance: BOSENTAN
     Indication: Raynaud^s phenomenon
     Dosage: FREQUENCY : TWICE A DAY;?
     Route: 048
     Dates: start: 20200810
  2. BOSENTAN [Suspect]
     Active Substance: BOSENTAN
     Indication: Gangrene

REACTIONS (2)
  - Hepatic enzyme increased [None]
  - Therapy change [None]

NARRATIVE: CASE EVENT DATE: 20220804
